FAERS Safety Report 22961110 (Version 2)
Quarter: 2023Q4

REPORT INFORMATION
  Report Type: Report from Study
  Country: FR (occurrence: FR)
  Receive Date: 20230920
  Receipt Date: 20231007
  Transmission Date: 20240110
  Serious: Yes (Death)
  Sender: FDA-Public Use
  Company Number: FR-AMGEN-USACT2023165320

PATIENT
  Age: 41 Year
  Sex: Female
  Weight: 69 kg

DRUGS (5)
  1. BLINATUMOMAB [Suspect]
     Active Substance: BLINATUMOMAB
     Indication: B precursor type acute leukaemia
     Dosage: 41.2 MICROGRAM, CYCLE 1, GOOD TOLERABILITY
     Route: 042
     Dates: start: 20180209
  2. BLINATUMOMAB [Suspect]
     Active Substance: BLINATUMOMAB
     Dosage: CYCLE 2, RECURRENCE OF HEPATOSPLENIC CANDIDIASIS CONTROLLED BY AMBISOME.
     Route: 065
     Dates: start: 20180404, end: 20200127
  3. VALACYCLOVIR HYDROCHLORIDE [Concomitant]
     Active Substance: VALACYCLOVIR HYDROCHLORIDE
     Indication: Herpes virus infection
     Dosage: 500 MILLIGRAM
     Route: 048
     Dates: start: 20170901
  4. IDARUBICIN [Concomitant]
     Active Substance: IDARUBICIN
     Dosage: 19 MILLIGRAM
     Route: 042
     Dates: start: 20200407, end: 20200409
  5. CYTARABINE [Concomitant]
     Active Substance: CYTARABINE
     Dosage: 6500 MILLIGRAM
     Route: 042
     Dates: start: 20200407, end: 20200410

REACTIONS (1)
  - Pulmonary mass [Fatal]

NARRATIVE: CASE EVENT DATE: 20200410
